FAERS Safety Report 12426945 (Version 1)
Quarter: 2016Q2

REPORT INFORMATION
  Report Type: Spontaneous
  Country: US (occurrence: US)
  Receive Date: 20160601
  Receipt Date: 20160601
  Transmission Date: 20160815
  Serious: No
  Sender: FDA-Public Use
  Company Number: US-SEPTODONT-201603242

PATIENT

DRUGS (1)
  1. ARTICAINE WITH EPINEPHRINE 1:100,000 ARTICAINE HYDROCHLORIDE; EPINEPHRINE BITARTRATE [Suspect]
     Active Substance: ARTICAINE HYDROCHLORIDE\EPINEPHRINE BITARTRATE
     Indication: LOCAL ANAESTHESIA
     Dosage: INFILTRATION INJECTION OVER THE MENTAL NERVE
     Route: 004

REACTIONS (2)
  - Hypoaesthesia oral [Unknown]
  - Drug ineffective [Unknown]
